FAERS Safety Report 18933679 (Version 1)
Quarter: 2021Q1

REPORT INFORMATION
  Report Type: Spontaneous
  Country: US (occurrence: US)
  Receive Date: 20210224
  Receipt Date: 20210224
  Transmission Date: 20210420
  Serious: Yes (Other)
  Sender: FDA-Public Use
  Company Number: US-TEVA-2021-US-1883990

PATIENT
  Sex: Female

DRUGS (10)
  1. OXYCODONE [Suspect]
     Active Substance: OXYCODONE
     Dosage: FORM OF ADMIN: IMMEDIATE?RELEASE
     Route: 065
  2. DHC PLUS [Suspect]
     Active Substance: ACETAMINOPHEN\CAFFEINE\DIHYDROCODEINE BITARTRATE
     Route: 065
  3. HYDROCODONE BITARTRATE AND ACETAMINOPHEN [Suspect]
     Active Substance: ACETAMINOPHEN\HYDROCODONE BITARTRATE
     Route: 065
  4. HYDROMORPHONE [Suspect]
     Active Substance: HYDROMORPHONE
     Route: 048
  5. MSIR [Suspect]
     Active Substance: MORPHINE SULFATE
     Route: 065
  6. HYDROCODONE BITARTRATE AND ACETAMINOPHEN [Suspect]
     Active Substance: ACETAMINOPHEN\HYDROCODONE BITARTRATE
     Dosage: DOSE: 7.5/325 (UNITS UNKNOWN)
     Route: 065
  7. OXYFAST [Suspect]
     Active Substance: OXYCODONE
     Route: 065
  8. PALLADONE [Suspect]
     Active Substance: HYDROMORPHONE HYDROCHLORIDE
     Route: 065
  9. TRAMADOL. [Suspect]
     Active Substance: TRAMADOL
     Dosage: FORM OF ADMIN: EXTENDED?RELEASE
     Route: 065
  10. HYSINGLA ER [Suspect]
     Active Substance: HYDROCODONE BITARTRATE
     Route: 065

REACTIONS (11)
  - Personal relationship issue [Unknown]
  - Liver disorder [Unknown]
  - Insomnia [Unknown]
  - Vision blurred [Unknown]
  - Headache [Unknown]
  - Arthritis [Unknown]
  - Drug dependence [Unknown]
  - Anxiety [Unknown]
  - Mood swings [Unknown]
  - Fatigue [Unknown]
  - Loss of employment [Unknown]
